FAERS Safety Report 15811747 (Version 1)
Quarter: 2018Q4

REPORT INFORMATION
  Report Type: Spontaneous
  Country: US (occurrence: US)
  Receive Date: 20181214
  Receipt Date: 20181214
  Transmission Date: 20190205
  Serious: No
  Sender: FDA-Public Use
  Company Number: None

PATIENT
  Age: 17 Year
  Sex: Female

DRUGS (1)
  1. BENLYSTA [Suspect]
     Active Substance: BELIMUMAB
     Indication: SYSTEMIC LUPUS ERYTHEMATOSUS
     Dosage: ?          OTHER FREQUENCY:OTHER;?
     Route: 058

REACTIONS (4)
  - Cough [None]
  - Pyrexia [None]
  - Pulmonary congestion [None]
  - Oropharyngeal pain [None]

NARRATIVE: CASE EVENT DATE: 20181213
